FAERS Safety Report 7546103-4 (Version None)
Quarter: 2011Q2

REPORT INFORMATION
  Report Type: 
  Country: None (occurrence: None)
  Receive Date: 20110614
  Receipt Date: 20110602
  Transmission Date: 20111010
  Serious: Yes (Disabling, Other)
  Sender: FDA-Public Use
  Company Number: PHEH2009US07572

PATIENT
  Sex: Male

DRUGS (2)
  1. RITALIN [Suspect]
     Indication: ATTENTION DEFICIT/HYPERACTIVITY DISORDER
     Dosage: 10 MG, QD
  2. BENADRYL ^WARNER-LAMBERT^               /USA/ [Concomitant]
     Dosage: 50 MG, QD

REACTIONS (6)
  - DISABILITY [None]
  - LEARNING DISABILITY [None]
  - BIPOLAR DISORDER [None]
  - CRYING [None]
  - DEPRESSED MOOD [None]
  - FEELING ABNORMAL [None]
